FAERS Safety Report 14247795 (Version 7)
Quarter: 2019Q2

REPORT INFORMATION
  Report Type: Report from Study
  Country: ES (occurrence: ES)
  Receive Date: 20171204
  Receipt Date: 20190627
  Transmission Date: 20190711
  Serious: Yes (Hospitalization)
  Sender: FDA-Public Use
  Company Number: ES-NOVOPROD-574429

PATIENT
  Age: 24 Year
  Sex: Female
  Weight: 60 kg

DRUGS (8)
  1. LANTUS [Suspect]
     Active Substance: INSULIN GLARGINE
     Dosage: 28 IU, QD
     Route: 058
     Dates: start: 20171101
  2. HUMALOG KWIKPEN [Suspect]
     Active Substance: INSULIN LISPRO
     Indication: TYPE 1 DIABETES MELLITUS
     Dosage: INSULIN UNIT PER CARBOHYD
     Route: 065
     Dates: start: 20130627, end: 20171118
  3. ACTRAPID [Suspect]
     Active Substance: INSULIN HUMAN
     Indication: TYPE 1 DIABETES MELLITUS
     Dosage: 15 IU, QD
     Route: 065
     Dates: start: 20171118, end: 20171120
  4. NATALBEN PLUS [Concomitant]
     Indication: PROPHYLAXIS
     Dosage: UNK
     Route: 065
     Dates: start: 20171002
  5. LANTUS [Suspect]
     Active Substance: INSULIN GLARGINE
     Indication: TYPE 1 DIABETES MELLITUS
     Dosage: 32 IU, QD
     Route: 058
     Dates: start: 20170811
  6. YODOCEFOL [Concomitant]
     Active Substance: CYANOCOBALAMIN\FOLIC ACID\POTASSIUM IODIDE
     Indication: PROPHYLAXIS
     Dosage: UNK
     Route: 065
     Dates: start: 20170727
  7. LANTUS [Suspect]
     Active Substance: INSULIN GLARGINE
     Dosage: 20 IU, QD
     Route: 058
     Dates: start: 20180205
  8. HUMALOG [Suspect]
     Active Substance: INSULIN LISPRO
     Indication: TYPE 1 DIABETES MELLITUS
     Dosage: INSULIN DOSE AS PER CARBOHYDRATE
     Route: 065
     Dates: start: 20171120

REACTIONS (4)
  - Exposure during pregnancy [Recovered/Resolved]
  - Diabetic ketoacidosis [Recovered/Resolved]
  - Hypertension [Recovered/Resolved]
  - Cardiac failure acute [Recovered/Resolved]

NARRATIVE: CASE EVENT DATE: 20170628
